FAERS Safety Report 15292380 (Version 1)
Quarter: 2018Q3

REPORT INFORMATION
  Report Type: Spontaneous
  Country: US (occurrence: US)
  Receive Date: 20180806
  Receipt Date: 20180806
  Transmission Date: 20181010
  Serious: Yes (Hospitalization)
  Sender: FDA-Public Use
  Company Number: None

PATIENT
  Age: 46 Year
  Sex: Female
  Weight: 90 kg

DRUGS (1)
  1. LINZESS [Suspect]
     Active Substance: LINACLOTIDE
     Indication: PRODUCT USED FOR UNKNOWN INDICATION
     Route: 048
     Dates: end: 20180722

REACTIONS (9)
  - Viral infection [None]
  - Vomiting [None]
  - Renal impairment [None]
  - Asthenia [None]
  - Diarrhoea [None]
  - Influenza [None]
  - Fall [None]
  - Gastritis [None]
  - Hypokalaemia [None]

NARRATIVE: CASE EVENT DATE: 20180722
